FAERS Safety Report 25355318 (Version 1)
Quarter: 2025Q2

REPORT INFORMATION
  Report Type: Spontaneous
  Country: JP (occurrence: JP)
  Receive Date: 20250524
  Receipt Date: 20250524
  Transmission Date: 20250716
  Serious: Yes (Death, Other)
  Sender: AMGEN
  Company Number: JP-AMGEN-JPNSP2025098733

PATIENT

DRUGS (5)
  1. PEGFILGRASTIM [Suspect]
     Active Substance: PEGFILGRASTIM
     Indication: Transitional cell carcinoma
     Dosage: 3.6 MILLIGRAM, Q2WK (DAY 4) (MG/BODY) (FOR TWO WEEKS FOR A TOTAL OF SIX CYCLES)
     Route: 065
  2. METHOTREXATE [Concomitant]
     Active Substance: METHOTREXATE
     Indication: Transitional cell carcinoma
     Dosage: 30 MILLIGRAM/SQ. METER, Q2WK (DAY 1) (FOR TWO WEEKS FOR A TOTAL OF SIX CYCLES)
     Route: 065
  3. VINBLASTINE [Concomitant]
     Active Substance: VINBLASTINE
     Indication: Transitional cell carcinoma
     Dosage: 3 MILLIGRAM/SQ. METER, Q2WK (DAY 2) (FOR TWO WEEKS FOR A TOTAL OF SIX CYCLES)
     Route: 065
  4. DOXORUBICIN [Concomitant]
     Active Substance: DOXORUBICIN
     Indication: Transitional cell carcinoma
     Dosage: 30 MILLIGRAM/SQ. METER, Q2WK (DAY 2) (FOR TWO WEEKS FOR A TOTAL OF SIX CYCLES)
     Route: 065
  5. CISPLATIN [Concomitant]
     Active Substance: CISPLATIN
     Indication: Transitional cell carcinoma
     Dosage: 70 MILLIGRAM/SQ. METER, Q2WK (DAY 2) (FOR TWO WEEKS FOR A TOTAL OF SIX CYCLES)
     Route: 065

REACTIONS (2)
  - Transitional cell carcinoma [Fatal]
  - Off label use [Unknown]
